FAERS Safety Report 9767967 (Version 1)
Quarter: 2013Q4

REPORT INFORMATION
  Report Type: Spontaneous
  Country: US (occurrence: US)
  Receive Date: 20131217
  Receipt Date: 20131217
  Transmission Date: 20140711
  Serious: Yes (Hospitalization, Other)
  Sender: FDA-Public Use
  Company Number: US-ABBVIE-13P-163-1177687-00

PATIENT
  Age: 44 Year
  Sex: Male

DRUGS (1)
  1. NORVIR ORAL [Suspect]
     Indication: HIV INFECTION

REACTIONS (3)
  - Liver transplant [Not Recovered/Not Resolved]
  - General physical health deterioration [Not Recovered/Not Resolved]
  - Hepatitis C [Unknown]
